FAERS Safety Report 5125863-6 (Version None)
Quarter: 2006Q4

REPORT INFORMATION
  Report Type: 
  Country: None (occurrence: None)
  Receive Date: 20061012
  Receipt Date: 20060420
  Transmission Date: 20070319
  Serious: Yes (Other)
  Sender: FDA-Public Use
  Company Number: US-GLAXOSMITHKLINE-A0602621A

PATIENT
  Age: 41 Year
  Sex: Male
  Weight: 97.7 kg

DRUGS (3)
  1. PAXIL [Suspect]
     Indication: GENERALISED ANXIETY DISORDER
     Dosage: 20MG PER DAY
     Route: 048
     Dates: start: 20020101, end: 20060101
  2. ZOCOR [Concomitant]
  3. PROTONIX [Concomitant]

REACTIONS (5)
  - ADVERSE EVENT [None]
  - EJACULATION DELAYED [None]
  - EJACULATION DISORDER [None]
  - FAECAL INCONTINENCE [None]
  - RECTAL DISCHARGE [None]
